FAERS Safety Report 9236690 (Version 1)
Quarter: 2013Q2

REPORT INFORMATION
  Report Type: Spontaneous
  Country: SE (occurrence: SE)
  Receive Date: 20130417
  Receipt Date: 20130417
  Transmission Date: 20140414
  Serious: Yes (Hospitalization)
  Sender: FDA-Public Use
  Company Number: SE-ELI_LILLY_AND_COMPANY-SE201304002996

PATIENT
  Sex: Male

DRUGS (4)
  1. HUMULIN NPH [Suspect]
     Indication: DIABETES MELLITUS
     Dosage: UNK
     Route: 042
     Dates: start: 20130402
  2. HUMALOG LISPRO [Suspect]
     Indication: DIABETES MELLITUS
     Dosage: UNK
     Route: 042
     Dates: start: 20130402
  3. NOVORAPID [Concomitant]
     Route: 058
  4. SIMVASTATIN [Concomitant]

REACTIONS (6)
  - Thrombocytopenia [Not Recovered/Not Resolved]
  - Alanine aminotransferase increased [Not Recovered/Not Resolved]
  - Aspartate aminotransferase increased [Not Recovered/Not Resolved]
  - Blood bilirubin decreased [Not Recovered/Not Resolved]
  - Wrong drug administered [Recovered/Resolved]
  - Incorrect route of drug administration [Recovered/Resolved]
